FAERS Safety Report 10386462 (Version 1)
Quarter: 2014Q3

REPORT INFORMATION
  Report Type: Spontaneous
  Country: BR (occurrence: BR)
  Receive Date: 20140815
  Receipt Date: 20140815
  Transmission Date: 20150326
  Serious: Yes (Death, Other)
  Sender: FDA-Public Use
  Company Number: BR-ALEXION PHARMACEUTICALS INC.-A201305634

PATIENT

DRUGS (1)
  1. SOLIRIS [Suspect]
     Active Substance: ECULIZUMAB
     Indication: PAROXYSMAL NOCTURNAL HAEMOGLOBINURIA
     Dosage: 900 MG, Q2W
     Route: 042
     Dates: start: 20120508, end: 20130430

REACTIONS (5)
  - Death [Fatal]
  - Renal disorder [Unknown]
  - Back pain [Unknown]
  - Nephrolithiasis [Unknown]
  - Platelet count increased [Unknown]

NARRATIVE: CASE EVENT DATE: 2013
